FAERS Safety Report 18937660 (Version 2)
Quarter: 2021Q1

REPORT INFORMATION
  Report Type: Report from Study
  Country: DK (occurrence: DK)
  Receive Date: 20210225
  Receipt Date: 20210303
  Transmission Date: 20210420
  Serious: Yes (Death)
  Sender: FDA-Public Use
  Company Number: DK-PFIZER INC-2003182658DK

PATIENT
  Age: 57 Year
  Sex: Female
  Weight: 164 kg

DRUGS (5)
  1. FARMORUBICIN [Suspect]
     Active Substance: EPIRUBICIN HYDROCHLORIDE
     Indication: BREAST CANCER
     Dosage: 738 MG/M2, CYCLIC (CUMULATIVE DOSE)
     Route: 042
     Dates: start: 19970304, end: 19970827
  2. GRANULOCYTE COLONY STIMULATING FACTOR [Concomitant]
     Active Substance: GRANULOCYTE COLONY-STIMULATING FACTOR NOS
     Dosage: 5 UG/KG
     Route: 058
  3. CYCLOPHOSPHAMIDE. [Suspect]
     Active Substance: CYCLOPHOSPHAMIDE
     Indication: BREAST CANCER
     Dosage: 9331 MG/M2, CYCLIC (CUMULATIVE DOSE)
     Dates: start: 19970304, end: 19970827
  4. FLURABLASTIN [FLUOROURACIL] [Suspect]
     Active Substance: FLUOROURACIL
     Indication: BREAST CANCER
     Dosage: UNK, CYCLIC
     Route: 042
     Dates: start: 19970304, end: 19970827
  5. TAMOXIFEN [Concomitant]
     Active Substance: TAMOXIFEN
     Dosage: 20 MG, DAILY, 20 MG/DAY FOR 5 YEARS

REACTIONS (3)
  - Acute myeloid leukaemia [Fatal]
  - Cerebral haemorrhage [Fatal]
  - Second primary malignancy [Fatal]
